FAERS Safety Report 9184178 (Version 1)
Quarter: 2013Q1

REPORT INFORMATION
  Report Type: Spontaneous
  Country: US (occurrence: US)
  Receive Date: 20130322
  Receipt Date: 20130322
  Transmission Date: 20140127
  Serious: No
  Sender: FDA-Public Use
  Company Number: US-BRISTOL-MYERS SQUIBB COMPANY-16454498

PATIENT
  Sex: Male

DRUGS (1)
  1. ERBITUX [Suspect]
     Dosage: LAST INF:9MAR2012?INF:2

REACTIONS (4)
  - Hair disorder [Unknown]
  - Skin disorder [Unknown]
  - Nail disorder [Unknown]
  - Rash [Unknown]
